FAERS Safety Report 6089361-8 (Version None)
Quarter: 2009Q1

REPORT INFORMATION
  Report Type: 
  Country: None (occurrence: None)
  Receive Date: 20090224
  Receipt Date: 20090212
  Transmission Date: 20090719
  Serious: Yes (Hospitalization)
  Sender: FDA-Public Use
  Company Number: CA-JNJFOC-20081203622

PATIENT
  Sex: Female
  Weight: 88 kg

DRUGS (18)
  1. REMICADE [Suspect]
     Route: 042
  2. REMICADE [Suspect]
     Route: 042
  3. REMICADE [Suspect]
     Indication: RHEUMATOID ARTHRITIS
     Route: 042
  4. NOVOQUININE [Concomitant]
  5. EFFEXOR XR [Concomitant]
     Dosage: 75 ^DIE^
  6. METHOTREXATE [Concomitant]
     Route: 048
  7. METFORMIN [Concomitant]
  8. MACROBID [Concomitant]
  9. ATENOLOL [Concomitant]
  10. CELEBREX [Concomitant]
  11. SYNTHROID [Concomitant]
  12. CYCLOBENZAPRINE [Concomitant]
  13. APO-FOLIC [Concomitant]
     Route: 048
  14. RATIO-OMEPRAZOLE [Concomitant]
     Route: 048
  15. APO-HYDROXYQUINE [Concomitant]
     Route: 048
  16. APO-RAMIPRIL [Concomitant]
     Route: 048
  17. CRESTOR [Concomitant]
     Route: 048
  18. NOVO VENLAFAXINE [Concomitant]
     Route: 048

REACTIONS (2)
  - FOOT OPERATION [None]
  - OSTEOMYELITIS [None]
